FAERS Safety Report 18075726 (Version 1)
Quarter: 2020Q3

REPORT INFORMATION
  Report Type: Spontaneous
  Country: US (occurrence: US)
  Receive Date: 20200727
  Receipt Date: 20200727
  Transmission Date: 20201103
  Serious: No
  Sender: FDA-Public Use
  Company Number: US-ABBVIE-19K-163-3213233-00

PATIENT
  Age: 58 Year
  Sex: Female

DRUGS (1)
  1. SYNTHROID [Suspect]
     Active Substance: LEVOTHYROXINE SODIUM
     Indication: HYPOTHYROIDISM
     Route: 048
     Dates: start: 2014, end: 2017

REACTIONS (4)
  - Fatigue [Recovered/Resolved]
  - Mobility decreased [Recovering/Resolving]
  - Incorrect dose administered [Unknown]
  - Madarosis [Unknown]

NARRATIVE: CASE EVENT DATE: 2017
